FAERS Safety Report 25918467 (Version 1)
Quarter: 2025Q4

REPORT INFORMATION
  Report Type: Spontaneous
  Country: AU (occurrence: AU)
  Receive Date: 20251014
  Receipt Date: 20251014
  Transmission Date: 20260117
  Serious: Yes (Other)
  Sender: RANBAXY
  Company Number: AU-SUN PHARMACEUTICAL INDUSTRIES INC-2025R1-530632

PATIENT
  Age: 51 Year
  Sex: Male

DRUGS (5)
  1. METHOTREXATE [Suspect]
     Active Substance: METHOTREXATE
     Indication: T-cell chronic lymphocytic leukaemia
     Dosage: 20 MILLIGRAM, WEEKLY
     Route: 065
     Dates: start: 20220201, end: 20220818
  2. CYCLOPHOSPHAMIDE [Suspect]
     Active Substance: CYCLOPHOSPHAMIDE
     Indication: T-cell chronic lymphocytic leukaemia
     Dosage: 100 MILLIGRAM, QD
     Route: 065
     Dates: start: 20230510, end: 20231106
  3. CYCLOPHOSPHAMIDE [Suspect]
     Active Substance: CYCLOPHOSPHAMIDE
     Dosage: 100 MILLIGRAM, QD
     Route: 065
     Dates: start: 20250105, end: 20250610
  4. CYCLOSPORINE [Suspect]
     Active Substance: CYCLOSPORINE
     Indication: T-cell chronic lymphocytic leukaemia
     Dosage: 100 MILLIGRAM, QD
     Route: 065
     Dates: start: 20220901, end: 20230221
  5. GRANULOCYTE COLONY-STIMULATING FACTOR NOS [Concomitant]
     Active Substance: GRANULOCYTE COLONY-STIMULATING FACTOR NOS
     Indication: Product used for unknown indication
     Dosage: 300 MILLIGRAM
     Route: 065

REACTIONS (4)
  - Nephropathy toxic [Unknown]
  - Infection [Unknown]
  - Loss of therapeutic response [Unknown]
  - Prostatitis [Unknown]
